FAERS Safety Report 10019700 (Version 2)
Quarter: 2014Q2

REPORT INFORMATION
  Report Type: Spontaneous
  Country: US (occurrence: US)
  Receive Date: 20140318
  Receipt Date: 20140618
  Transmission Date: 20141212
  Serious: No
  Sender: FDA-Public Use
  Company Number: US-GALDERMA-US14000682

PATIENT
  Age: 47 Year
  Sex: Female

DRUGS (6)
  1. MIRVASO (BRIMONIDINE) TOPICAL GEL, 0.33% [Suspect]
     Indication: ROSACEA
     Dosage: 0.33%
     Route: 061
     Dates: start: 20140120, end: 20140124
  2. LEVOTHYROXINE [Concomitant]
     Indication: HYPOTHYROIDISM
     Dosage: 75 MCG
     Route: 048
     Dates: start: 2007
  3. MULTIVITAMIN [Concomitant]
     Indication: ROUTINE HEALTH MAINTENANCE
     Dates: start: 1990
  4. CALCIUM [Concomitant]
     Indication: ROUTINE HEALTH MAINTENANCE
     Dates: start: 1990
  5. OMEGA 3 FISH OIL [Concomitant]
     Indication: BLEPHARITIS
     Dates: start: 2013
  6. FLAX OIL [Concomitant]
     Indication: BLEPHARITIS
     Dates: start: 2013

REACTIONS (6)
  - Rebound effect [Recovered/Resolved]
  - Flushing [Recovered/Resolved]
  - Skin warm [Recovered/Resolved]
  - Erythema [Recovered/Resolved]
  - Skin burning sensation [Recovered/Resolved]
  - Feeling hot [Recovered/Resolved]
